FAERS Safety Report 5038202-6 (Version None)
Quarter: 2006Q2

REPORT INFORMATION
  Report Type: 
  Country: None (occurrence: None)
  Receive Date: 20060626
  Receipt Date: 20060606
  Transmission Date: 20061013
  Serious: Yes (Hospitalization)
  Sender: FDA-Public Use
  Company Number: 2006031367

PATIENT
  Age: 87 Year
  Sex: Female

DRUGS (12)
  1. MACUGEN [Suspect]
     Indication: MACULAR DEGENERATION
     Dosage: 1 IN 1 WK
     Dates: start: 20050101, end: 20060120
  2. ASPIRIN [Suspect]
     Indication: ILL-DEFINED DISORDER
     Dosage: 325 MG (325 MG, 1 IN 1 D)
     Dates: end: 20060226
  3. PREDNISONE TAB [Suspect]
     Indication: ILL-DEFINED DISORDER
     Dosage: 40 MG (40 MG, 1 IN 1 D)
     Dates: start: 20060101
  4. OXYBUTYNIN (OXYBUTYNIN HYDROCHLORIDE) [Concomitant]
  5. NEXIUM [Concomitant]
  6. HYZAAR [Concomitant]
  7. LEVOTHROID [Concomitant]
  8. LIPITOR [Concomitant]
  9. CALCIUM GLUCONATE [Concomitant]
  10. MULTIVITAMIN [Concomitant]
  11. ICAPS (MINERALS NOS, VITAMINS NOS) [Concomitant]
  12. MOXIFLOXACIN HCL [Concomitant]

REACTIONS (18)
  - ABDOMINAL PAIN UPPER [None]
  - BLOOD PRESSURE INADEQUATELY CONTROLLED [None]
  - BLOOD PRESSURE INCREASED [None]
  - CEREBRAL ARTERIOSCLEROSIS [None]
  - CEREBRAL ARTERY STENOSIS [None]
  - CEREBRAL ATROPHY [None]
  - CEREBRAL ISCHAEMIA [None]
  - CONTUSION [None]
  - DIFFICULTY IN WALKING [None]
  - DIVERTICULITIS [None]
  - DIZZINESS [None]
  - EARLY SATIETY [None]
  - HIATUS HERNIA [None]
  - HUNGER [None]
  - IDIOPATHIC THROMBOCYTOPENIC PURPURA [None]
  - IRRITABILITY [None]
  - LACUNAR INFARCTION [None]
  - RASH ERYTHEMATOUS [None]
